FAERS Safety Report 18283022 (Version 1)
Quarter: 2020Q3

REPORT INFORMATION
  Report Type: Spontaneous
  Country: CA (occurrence: CA)
  Receive Date: 20200918
  Receipt Date: 20200918
  Transmission Date: 20201103
  Serious: Yes (Death)
  Sender: FDA-Public Use
  Company Number: CA-PFIZER INC-2020206291

PATIENT
  Age: 68 Year
  Sex: Female

DRUGS (25)
  1. VENLAFAXINE HCL [Concomitant]
     Active Substance: VENLAFAXINE HYDROCHLORIDE
     Dosage: 1 CAPSULE WITH 1 CAPSULE OF 75MG DAILY
     Route: 048
     Dates: start: 20200525
  2. SENOKOT [Concomitant]
     Active Substance: SENNOSIDES
     Dosage: 3 TABLETS TWICE DAILY
     Dates: start: 20200316
  3. IBRANCE [Suspect]
     Active Substance: PALBOCICLIB
     Dosage: 100 MG, CYCLIC (DAILY FOR 21 DAYS, FOLLOWED BY 7 DAYS OFF)
     Route: 048
     Dates: start: 20200601
  4. DEXAMETHASONE. [Concomitant]
     Active Substance: DEXAMETHASONE
     Dosage: 1 TABLET EACH DAY WITH BREAKFAST
     Dates: start: 20200520
  5. DEXAMETHASONE. [Concomitant]
     Active Substance: DEXAMETHASONE
     Dosage: 12 TABLETS (=6MG), EACH DAY WITH BREAKFAST
     Dates: start: 20200525
  6. CYCLOBENZAPRINE HCL [Concomitant]
     Active Substance: CYCLOBENZAPRINE HYDROCHLORIDE
     Dosage: 2 TABLETS ONCE DAILY AT DISCONTINUE BACLOFEN
     Dates: start: 20200317
  7. VALACYCLOVIR HCL [Concomitant]
     Active Substance: VALACYCLOVIR HYDROCHLORIDE
     Dosage: 1 TABLET DAILY
     Dates: start: 20200316
  8. DICLOFENAC [Concomitant]
     Active Substance: DICLOFENAC
     Dosage: 1 TABLET TWICE DAILY
     Dates: start: 20200316
  9. IBRANCE [Suspect]
     Active Substance: PALBOCICLIB
     Dosage: 100 MG, CYCLIC (DAILY FOR 21 DAYS, FOLLOWED BY 7 DAYS OFF)
     Route: 048
  10. HYDROMORPHONE HCL [Concomitant]
     Active Substance: HYDROMORPHONE HYDROCHLORIDE
     Dosage: 1 TABLET EVERY 4 HOURS DURING THE DAY WHEN REQUIRED OPIOD ANALGESICS
     Dates: start: 20200506
  11. HYDROMORPHONE HCL [Concomitant]
     Active Substance: HYDROMORPHONE HYDROCHLORIDE
     Dosage: 1 TABLET (IN ADDITION TO 2 MG TABLETS) EVERY 2 HOURS WHEN REQUIRED
     Route: 048
     Dates: start: 20200427
  12. ACETAMINOPHEN. [Concomitant]
     Active Substance: ACETAMINOPHEN
     Dosage: 2 TABLETS TWICE DAILY
     Dates: start: 20200316
  13. FASLODEX [Concomitant]
     Active Substance: FULVESTRANT
     Dosage: 10 ML (500 MG) EVERY 14 DAYS FOR 3 DOSES (LOADING DOSE)
     Route: 030
  14. GABAPENTIN. [Concomitant]
     Active Substance: GABAPENTIN
     Dosage: 1 CAPSULE EACH MORNING AND TAKE 2 CAPSULE AT BEDTIME
     Dates: start: 20200525
  15. ONDASETRON [ONDANSETRON HYDROCHLORIDE] [Concomitant]
     Indication: NAUSEA
     Dosage: 1 TABLET ONE HOUR PRIOR TO RADIATION, CAN TAKE UP TO EVERY 8 HOURS WHEN REQUIRED FOR NAUSEA
     Dates: start: 20200422
  16. ANASTRAZOLE DENK [Concomitant]
     Active Substance: ANASTROZOLE
     Dosage: 1 TABLET EVERY SECOND DAY
     Dates: start: 20200319
  17. RABEPRAZOLE [Concomitant]
     Active Substance: RABEPRAZOLE
     Dosage: 1 TABLET DAILY
     Dates: start: 20200316
  18. VENLAFAXINE HCL [Concomitant]
     Active Substance: VENLAFAXINE HYDROCHLORIDE
     Dosage: 1 CAPSULE DAILY
     Route: 048
     Dates: start: 20200525
  19. HYDROMORPHONE HCL [Concomitant]
     Active Substance: HYDROMORPHONE HYDROCHLORIDE
     Dosage: 1 CAPSULE EVERY NIGHT AT BEDTIME ADDITIONAL TO CURRENT EVERY 8 HOURS DOSING
     Route: 048
     Dates: start: 20200415
  20. HYDROMORPHONE HCL [Concomitant]
     Active Substance: HYDROMORPHONE HYDROCHLORIDE
     Dosage: 1 CAPSULE EVERY 8 HOURS
     Route: 048
     Dates: start: 20200521
  21. NABILONE [Concomitant]
     Active Substance: NABILONE
     Dosage: 3 CAPSULES DAILY
     Dates: start: 20200325
  22. NALOXONE [NALOXONE HYDROCHLORIDE] [Concomitant]
     Dosage: USE AS DIRECTED
     Route: 045
     Dates: start: 20200223
  23. BACLOFEN. [Concomitant]
     Active Substance: BACLOFEN
     Dosage: 3 TABLETS EVERY NIGHT AT BEDTIME
     Route: 048
     Dates: start: 20191216
  24. FASLODEX [Concomitant]
     Active Substance: FULVESTRANT
     Dosage: 10 ML (500 MG) EVERY 28 DAYS FOR 1 DOSE (MAINTENANCE DOSE)
     Route: 030
  25. AMITRIPTYLINE [Concomitant]
     Active Substance: AMITRIPTYLINE
     Dosage: 2 TABLETS (=20MG) EVERY NIGHT AT BEDTIME
     Route: 048
     Dates: start: 20200316

REACTIONS (4)
  - Asthenia [Unknown]
  - Death [Fatal]
  - Pain [Unknown]
  - Feeling abnormal [Unknown]

NARRATIVE: CASE EVENT DATE: 202008
